FAERS Safety Report 12374310 (Version 1)
Quarter: 2016Q2

REPORT INFORMATION
  Report Type: Spontaneous
  Country: UA (occurrence: None)
  Receive Date: 20160516
  Receipt Date: 20160516
  Transmission Date: 20160815
  Serious: Yes (Death)
  Sender: FDA-Public Use
  Company Number: None

PATIENT
  Sex: Male
  Weight: 75 kg

DRUGS (1)
  1. AMOXICILLIN/CLAVULANATE 875 MG TEVA [Suspect]
     Active Substance: AMOXICILLIN\CLAVULANATE POTASSIUM
     Indication: POSTOPERATIVE CARE
     Route: 048

REACTIONS (2)
  - Sudden death [None]
  - Anaphylactic reaction [None]
